FAERS Safety Report 10906814 (Version 1)
Quarter: 2015Q1

REPORT INFORMATION
  Report Type: Spontaneous
  Country: US (occurrence: None)
  Receive Date: 20150309
  Receipt Date: 20150309
  Transmission Date: 20150721
  Serious: Yes (Life-Threatening, Hospitalization, Disabling)
  Sender: FDA-Public Use
  Company Number: None

PATIENT
  Age: 30 Year
  Sex: Female
  Weight: 74.84 kg

DRUGS (6)
  1. XARELTO [Concomitant]
     Active Substance: RIVAROXABAN
  2. TYLENOL [Concomitant]
     Active Substance: ACETAMINOPHEN
  3. ZOLOFT [Concomitant]
     Active Substance: SERTRALINE HYDROCHLORIDE
  4. XANAX [Concomitant]
     Active Substance: ALPRAZOLAM
  5. ORTHO TRI CYCLEN LO [Suspect]
     Active Substance: ETHINYL ESTRADIOL\NORGESTIMATE
     Indication: CONTRACEPTION
     Dosage: 1 PILL
     Route: 048
  6. TOPAMAX [Concomitant]
     Active Substance: TOPIRAMATE

REACTIONS (6)
  - Transverse sinus thrombosis [None]
  - Adhesion [None]
  - Jugular vein thrombosis [None]
  - Migraine [None]
  - Cerebral venous thrombosis [None]
  - Cerebrovascular disorder [None]

NARRATIVE: CASE EVENT DATE: 20140610
